FAERS Safety Report 7624457-8 (Version None)
Quarter: 2011Q3

REPORT INFORMATION
  Report Type: 
  Country: None (occurrence: None)
  Receive Date: 20110712
  Receipt Date: 20110630
  Transmission Date: 20111222
  Serious: Yes (Disabling, Other)
  Sender: FDA-Public Use
  Company Number: 2011SP030643

PATIENT
  Age: 25 Year
  Sex: Female
  Weight: 49.8957 kg

DRUGS (2)
  1. IMPLANON [Suspect]
     Indication: ENDOMETRIOSIS
     Dosage: SBDE
     Route: 059
     Dates: start: 20100816
  2. IMPLANON [Suspect]
     Indication: CONTRACEPTION
     Dosage: SBDE
     Route: 059
     Dates: start: 20100816

REACTIONS (1)
  - HYPERTENSION [None]
